FAERS Safety Report 15006700 (Version 1)
Quarter: 2018Q2

REPORT INFORMATION
  Report Type: Spontaneous
  Country: US (occurrence: US)
  Receive Date: 20180613
  Receipt Date: 20180613
  Transmission Date: 20180711
  Serious: Yes (Other)
  Sender: FDA-Public Use
  Company Number: US-ASTELLAS-2018US026871

PATIENT
  Sex: Male

DRUGS (2)
  1. AMBISOME [Suspect]
     Active Substance: AMPHOTERICIN B
     Route: 065
  2. AMBISOME [Suspect]
     Active Substance: AMPHOTERICIN B
     Indication: MUCORMYCOSIS
     Route: 065

REACTIONS (1)
  - Cardiotoxicity [Unknown]
